FAERS Safety Report 20680657 (Version 2)
Quarter: 2022Q2

REPORT INFORMATION
  Report Type: Spontaneous
  Country: US (occurrence: US)
  Receive Date: 20220406
  Receipt Date: 20220413
  Transmission Date: 20220721
  Serious: Yes (Other)
  Sender: FDA-Public Use
  Company Number: US-TEVA-2022-US-2023645

PATIENT
  Age: 42 Year
  Sex: Female

DRUGS (12)
  1. GEMCITABINE [Suspect]
     Active Substance: GEMCITABINE
     Indication: Ovarian cancer recurrent
     Route: 065
  2. GEMCITABINE [Suspect]
     Active Substance: GEMCITABINE
     Indication: Ovarian cancer stage III
  3. CISPLATIN [Suspect]
     Active Substance: CISPLATIN
     Indication: Ovarian cancer recurrent
     Route: 065
  4. CISPLATIN [Suspect]
     Active Substance: CISPLATIN
     Indication: Ovarian cancer stage III
  5. OXALIPLATIN [Suspect]
     Active Substance: OXALIPLATIN
     Indication: Ovarian cancer recurrent
     Route: 065
  6. OXALIPLATIN [Suspect]
     Active Substance: OXALIPLATIN
     Indication: Ovarian cancer stage III
  7. CARBOPLATIN [Suspect]
     Active Substance: CARBOPLATIN
     Indication: Ovarian cancer recurrent
     Route: 065
  8. CARBOPLATIN [Suspect]
     Active Substance: CARBOPLATIN
     Indication: Ovarian cancer stage III
  9. BEVACIZUMAB [Suspect]
     Active Substance: BEVACIZUMAB
     Indication: Ovarian cancer recurrent
     Route: 065
  10. BEVACIZUMAB [Suspect]
     Active Substance: BEVACIZUMAB
     Indication: Ovarian cancer stage III
  11. TAXOL [Suspect]
     Active Substance: PACLITAXEL
     Indication: Ovarian cancer recurrent
     Route: 065
  12. TAXOL [Suspect]
     Active Substance: PACLITAXEL
     Indication: Ovarian cancer stage III

REACTIONS (1)
  - Drug hypersensitivity [Unknown]
